FAERS Safety Report 15712845 (Version 1)
Quarter: 2018Q4

REPORT INFORMATION
  Report Type: Spontaneous
  Country: US (occurrence: US)
  Receive Date: 20181212
  Receipt Date: 20181212
  Transmission Date: 20190205
  Serious: No
  Sender: FDA-Public Use
  Company Number: US-HORIZON-KRY-0416-2018

PATIENT
  Sex: Female

DRUGS (2)
  1. KRYSTEXXA [Suspect]
     Active Substance: PEGLOTICASE
     Indication: GOUT
     Dosage: 8 MG ONCE EVERY TWO WEEKS
     Dates: start: 20181024
  2. COLCHICINE. [Concomitant]
     Active Substance: COLCHICINE

REACTIONS (4)
  - Weight fluctuation [Unknown]
  - Diarrhoea [Unknown]
  - Abnormal faeces [Unknown]
  - Dyspnoea [Unknown]

NARRATIVE: CASE EVENT DATE: 201810
